FAERS Safety Report 20332204 (Version 1)
Quarter: 2022Q1

REPORT INFORMATION
  Report Type: Spontaneous
  Country: US (occurrence: None)
  Receive Date: 20220113
  Receipt Date: 20220113
  Transmission Date: 20220423
  Serious: No
  Sender: FDA-Public Use
  Company Number: None

PATIENT
  Sex: Female

DRUGS (9)
  1. HUMIRA [Suspect]
     Active Substance: ADALIMUMAB
     Indication: Rheumatoid arthritis
     Dosage: OTHER FREQUENCY : EVRY 14 DAYS;?
     Route: 058
     Dates: start: 20200917
  2. FUROSEMIDE\POTASSIUM CHLORIDE [Concomitant]
     Active Substance: FUROSEMIDE\POTASSIUM CHLORIDE
  3. POTASSIUM CHLORIDE [Concomitant]
     Active Substance: POTASSIUM CHLORIDE
  4. AMLODIPINE BESYLATE [Concomitant]
     Active Substance: AMLODIPINE BESYLATE
  5. ASPIRIN [Concomitant]
     Active Substance: ASPIRIN
  6. LEUCOVORIN CALCIUM [Concomitant]
     Active Substance: LEUCOVORIN CALCIUM
  7. METAFORM [Concomitant]
  8. ATORVASTATIN CALCIUM [Concomitant]
     Active Substance: ATORVASTATIN CALCIUM
  9. FOLIC ACID [Concomitant]
     Active Substance: FOLIC ACID

REACTIONS (4)
  - Pain [None]
  - Drug ineffective [None]
  - Joint swelling [None]
  - Osteoarthritis [None]
